FAERS Safety Report 18284273 (Version 1)
Quarter: 2020Q3

REPORT INFORMATION
  Report Type: Spontaneous
  Country: US (occurrence: US)
  Receive Date: 20200918
  Receipt Date: 20200918
  Transmission Date: 20201103
  Serious: Yes (Hospitalization)
  Sender: FDA-Public Use
  Company Number: US-LEXICON PHARMACEUTICALS, INC-20-1606-00757

PATIENT
  Age: 68 Year
  Sex: Female

DRUGS (2)
  1. SANDOSTATIN [Concomitant]
     Active Substance: OCTREOTIDE ACETATE
  2. XERMELO [Suspect]
     Active Substance: TELOTRISTAT ETHYL
     Indication: PANCREATIC CARCINOMA
     Dates: start: 20200605

REACTIONS (8)
  - Palpitations [Unknown]
  - Asthenia [Unknown]
  - Diarrhoea [Unknown]
  - Defaecation urgency [Unknown]
  - Disease progression [Unknown]
  - Dyspnoea [Unknown]
  - Vomiting [Unknown]
  - Abdominal pain [None]

NARRATIVE: CASE EVENT DATE: 202009
